FAERS Safety Report 17652101 (Version 1)
Quarter: 2020Q2

REPORT INFORMATION
  Report Type: Spontaneous
  Country: SE (occurrence: SE)
  Receive Date: 20200409
  Receipt Date: 20200409
  Transmission Date: 20200713
  Serious: Yes (Hospitalization)
  Sender: FDA-Public Use
  Company Number: SE-TEVA-2020-SE-1221466

PATIENT
  Sex: Male

DRUGS (15)
  1. SPIRONOLACTONE. [Concomitant]
     Active Substance: SPIRONOLACTONE
  2. OXASCAND [Concomitant]
     Active Substance: OXAZEPAM
  3. IMOVANE [Concomitant]
     Active Substance: ZOPICLONE
  4. METOPROLOL. [Suspect]
     Active Substance: METOPROLOL
     Dosage: 75MG 1 PER DAY
     Route: 048
  5. PANODIL BRUS [Concomitant]
     Dosage: 1 GRAM V.B.
  6. SAROTEN [Suspect]
     Active Substance: AMITRIPTYLINE
     Dosage: 10 MG 1 PER DAY
     Route: 048
  7. GLYCERYL TRINITRATE [Concomitant]
     Active Substance: NITROGLYCERIN
     Dosage: 0.5 MG V.B.
  8. PANOCOD [Concomitant]
     Active Substance: ACETAMINOPHEN\CODEINE PHOSPHATE
  9. LAXOBERAL [Concomitant]
     Active Substance: SODIUM PICOSULFATE
     Dosage: 10 DRP V.B.
  10. LANTUS [Concomitant]
     Active Substance: INSULIN GLARGINE
  11. WARAN [Concomitant]
     Active Substance: WARFARIN SODIUM
  12. FURIX [Concomitant]
  13. MULTAQ [Concomitant]
     Active Substance: DRONEDARONE
  14. OXYNORM [Concomitant]
     Active Substance: OXYCODONE HYDROCHLORIDE
  15. NOVORAPID [Concomitant]
     Active Substance: INSULIN ASPART

REACTIONS (3)
  - Tremor [Not Recovered/Not Resolved]
  - Heart rate decreased [Not Recovered/Not Resolved]
  - Contusion [Not Recovered/Not Resolved]
